FAERS Safety Report 8026954-2 (Version None)
Quarter: 2011Q4

REPORT INFORMATION
  Report Type: 
  Country: None (occurrence: None)
  Receive Date: 20111130
  Receipt Date: 20110727
  Transmission Date: 20120403
  Serious: Yes (Hospitalization, Other)
  Sender: FDA-Public Use
  Company Number: US201007007859

PATIENT
  Sex: Male
  Weight: 113.4 kg

DRUGS (3)
  1. FUROSEMIDE [Concomitant]
  2. GLIPIZIDE [Concomitant]
  3. BYETTA [Suspect]
     Dates: start: 20060101, end: 20090801

REACTIONS (3)
  - PANCREATITIS [None]
  - RENAL FAILURE [None]
  - RENAL FAILURE ACUTE [None]
